FAERS Safety Report 4445541-6 (Version None)
Quarter: 2004Q3

REPORT INFORMATION
  Report Type: 
  Country: None (occurrence: None)
  Receive Date: 20040804
  Receipt Date: 20030808
  Transmission Date: 20050211
  Serious: Yes (Hospitalization)
  Sender: FDA-Public Use
  Company Number: 201402

PATIENT
  Age: 51 Year
  Sex: Female
  Weight: 68.9 kg

DRUGS (8)
  1. HERCEPTIN [Suspect]
     Indication: BREAST CANCER METASTATIC
     Dosage: 144 MG, 1/WEEK, INTRAVENOUS
     Route: 042
     Dates: start: 19990407
  2. LOTENSIN [Concomitant]
  3. ATIVAN [Concomitant]
  4. EFFEXOR [Concomitant]
  5. REGLAN [Concomitant]
  6. COUMADIN [Concomitant]
  7. PREVACID [Concomitant]
  8. AMARYL [Concomitant]

REACTIONS (1)
  - PANCREATITIS [None]
